FAERS Safety Report 8384939-0 (Version None)
Quarter: 2012Q2

REPORT INFORMATION
  Report Type: 
  Country: None (occurrence: None)
  Receive Date: 20120524
  Receipt Date: 20120516
  Transmission Date: 20120825
  Serious: Yes (Death)
  Sender: FDA-Public Use
  Company Number: JP-GILEAD-2012-0054072

PATIENT
  Sex: Male

DRUGS (15)
  1. PREDNISOLONE [Concomitant]
     Indication: IDIOPATHIC PULMONARY FIBROSIS
     Route: 065
  2. REVATIO [Concomitant]
     Indication: PULMONARY HYPERTENSION
     Route: 048
     Dates: start: 20100528
  3. PIRFENIDONE [Concomitant]
     Indication: IDIOPATHIC PULMONARY FIBROSIS
     Route: 048
  4. PIRFENIDONE [Concomitant]
     Route: 048
  5. FUROSEMIDE [Concomitant]
     Route: 065
  6. INTAL [Concomitant]
     Route: 045
  7. EPINASTINE HYDROCHLORIDE [Concomitant]
     Route: 048
  8. PRIVINA                            /00419603/ [Concomitant]
     Indication: RHINITIS ALLERGIC
     Route: 045
  9. COTRIM [Concomitant]
     Route: 048
  10. AMBRISENTAN [Suspect]
     Indication: PULMONARY ARTERIAL HYPERTENSION
     Dosage: 2.5 MG, QD
     Route: 048
     Dates: start: 20101022, end: 20101106
  11. FUROSEMIDE [Concomitant]
     Indication: PULMONARY OEDEMA
     Route: 065
  12. COTRIM [Concomitant]
     Indication: ANTIFUNGAL PROPHYLAXIS
     Route: 048
  13. EPINASTINE HYDROCHLORIDE [Concomitant]
     Indication: RHINITIS ALLERGIC
     Route: 048
  14. PREDNISOLONE [Concomitant]
     Route: 065
  15. INTAL [Concomitant]
     Indication: RHINITIS ALLERGIC
     Route: 045

REACTIONS (1)
  - RESPIRATORY FAILURE [None]
